FAERS Safety Report 4618547-1 (Version None)
Quarter: 2005Q1

REPORT INFORMATION
  Report Type: 
  Country: None (occurrence: None)
  Receive Date: 20050324
  Receipt Date: 20050314
  Transmission Date: 20050727
  Serious: Yes (Hospitalization)
  Sender: FDA-Public Use
  Company Number: 2005-01-0224

PATIENT
  Sex: Female

DRUGS (2)
  1. TEMODAL [Suspect]
     Dosage: ORAL; 3 CYCLE (S)
     Route: 048
  2. DIFLUCAN [Suspect]

REACTIONS (2)
  - HEPATITIS FULMINANT [None]
  - OVERDOSE [None]
